FAERS Safety Report 4309768-6 (Version None)
Quarter: 2004Q1

REPORT INFORMATION
  Report Type: 
  Country: None (occurrence: None)
  Receive Date: 20040301
  Receipt Date: 20031028
  Transmission Date: 20041129
  Serious: Yes (Other)
  Sender: FDA-Public Use
  Company Number: US_030997541

PATIENT
  Age: 54 Year
  Sex: Male

DRUGS (4)
  1. PERMAX [Suspect]
     Indication: PARKINSON'S DISEASE
     Dates: start: 20000101
  2. PROVIGIL [Concomitant]
  3. ATACANI (CANDESARTAN CILEXETIL) [Concomitant]
  4. PRILOSEC [Concomitant]

REACTIONS (2)
  - MITRAL VALVE INCOMPETENCE [None]
  - TRICUSPID VALVE INCOMPETENCE [None]
